FAERS Safety Report 8018746-5 (Version None)
Quarter: 2012Q1

REPORT INFORMATION
  Report Type: 
  Country: None (occurrence: None)
  Receive Date: 20120103
  Receipt Date: 20120103
  Transmission Date: 20120608
  Serious: Yes (Other)
  Sender: FDA-Public Use
  Company Number: None

PATIENT
  Age: 61 Year
  Sex: Female
  Weight: 58.967 kg

DRUGS (1)
  1. ANASTROZOLE [Suspect]
     Indication: BREAST CANCER
     Dosage: 1 MG
     Route: 048
     Dates: start: 20111001, end: 20111227

REACTIONS (11)
  - INSOMNIA [None]
  - FATIGUE [None]
  - AMNESIA [None]
  - DISTURBANCE IN ATTENTION [None]
  - ARTHRALGIA [None]
  - HOT FLUSH [None]
  - IMPAIRED WORK ABILITY [None]
  - PAIN [None]
  - HYPERHIDROSIS [None]
  - ILL-DEFINED DISORDER [None]
  - JOINT STIFFNESS [None]
